FAERS Safety Report 9345350 (Version 2)
Quarter: 2013Q3

REPORT INFORMATION
  Report Type: Spontaneous
  Country: US (occurrence: US)
  Receive Date: 20130613
  Receipt Date: 20130712
  Transmission Date: 20140515
  Serious: No
  Sender: FDA-Public Use
  Company Number: US-ASTRAZENECA-2013SE38009

PATIENT
  Age: 68 Year
  Sex: Female
  Weight: 63.5 kg

DRUGS (7)
  1. NEXIUM [Suspect]
     Indication: GASTROOESOPHAGEAL REFLUX DISEASE
     Route: 048
     Dates: end: 2008
  2. NEXIUM [Suspect]
     Indication: GASTROOESOPHAGEAL REFLUX DISEASE
     Route: 048
     Dates: start: 20130520, end: 20130523
  3. NEXIUM [Suspect]
     Indication: GASTROOESOPHAGEAL REFLUX DISEASE
     Route: 048
  4. XANAX [Concomitant]
     Indication: INSOMNIA
  5. XANAX [Concomitant]
     Indication: ANXIETY
  6. SYNTHROID [Concomitant]
     Indication: THYROID DISORDER
  7. TOPAMAX [Concomitant]
     Indication: MIGRAINE

REACTIONS (4)
  - Migraine [Not Recovered/Not Resolved]
  - Gastrooesophageal reflux disease [Unknown]
  - Weight increased [Unknown]
  - Nausea [Unknown]
